FAERS Safety Report 7114456-7 (Version None)
Quarter: 2010Q4

REPORT INFORMATION
  Report Type: 
  Country: None (occurrence: None)
  Receive Date: 20101119
  Receipt Date: 20101105
  Transmission Date: 20110411
  Serious: Yes (Hospitalization, Other)
  Sender: FDA-Public Use
  Company Number: GB-ELI_LILLY_AND_COMPANY-GB201010005839

PATIENT
  Sex: Female
  Weight: 40 kg

DRUGS (2)
  1. ZYPADHERA [Suspect]
     Indication: DECREASED APPETITE
     Dosage: 210 MG, SINGLE DOSE
     Route: 030
     Dates: start: 20101020
  2. SANATOGEN [Concomitant]
     Dosage: 1 D/F, 2/D
     Route: 048

REACTIONS (6)
  - HAEMOGLOBIN DECREASED [None]
  - LOSS OF CONSCIOUSNESS [None]
  - OFF LABEL USE [None]
  - SEDATION [None]
  - SYNCOPE [None]
  - UNRESPONSIVE TO STIMULI [None]
